FAERS Safety Report 7067801-5 (Version None)
Quarter: 2010Q4

REPORT INFORMATION
  Report Type: 
  Country: None (occurrence: None)
  Receive Date: 20101028
  Receipt Date: 20101013
  Transmission Date: 20110411
  Serious: Yes (Other)
  Sender: FDA-Public Use
  Company Number: PHHY2010US64466

PATIENT
  Sex: Female

DRUGS (11)
  1. RECLAST [Suspect]
     Indication: BONE DENSITY DECREASED
     Dosage: 5MG/100ML
     Dates: start: 20100910
  2. RECLAST [Suspect]
     Indication: OSTEOPENIA
  3. BUMEX [Concomitant]
     Dosage: 2 MG QD
     Route: 048
  4. SPIRONOLACTONE [Concomitant]
     Dosage: 25 MG QD
     Route: 048
  5. POTASSIUM CHLORIDE [Concomitant]
     Route: 048
  6. FISH OIL [Concomitant]
  7. CALCIUM [Concomitant]
  8. VITAMIN D [Concomitant]
  9. TRICOR [Concomitant]
     Dosage: 145 MG QD
     Route: 048
  10. ASPIRIN [Concomitant]
     Dosage: 81 MG QD
     Route: 048
  11. NAPROXEN [Concomitant]
     Dosage: 500 MG PRN QD

REACTIONS (11)
  - ARTHRALGIA [None]
  - ERYTHEMA [None]
  - INFLUENZA LIKE ILLNESS [None]
  - LOWER EXTREMITY MASS [None]
  - MYALGIA [None]
  - OEDEMA PERIPHERAL [None]
  - PAIN [None]
  - PARAESTHESIA [None]
  - RENAL FAILURE [None]
  - RENAL IMPAIRMENT [None]
  - VENOUS INSUFFICIENCY [None]
